FAERS Safety Report 9486108 (Version 1)
Quarter: 2013Q3

REPORT INFORMATION
  Report Type: Spontaneous
  Country: US (occurrence: None)
  Receive Date: 20130827
  Receipt Date: 20130827
  Transmission Date: 20140515
  Serious: No
  Sender: FDA-Public Use
  Company Number: None

PATIENT
  Age: 56 Year
  Sex: Female
  Weight: 60.78 kg

DRUGS (2)
  1. WELLBUTRIN XL [Suspect]
     Indication: DEPRESSION
     Dosage: 3 ONCE DAILY TAKEN BY MOUTH
     Route: 048
     Dates: start: 20130114, end: 20130121
  2. WELLBUTRIN XL [Suspect]
     Indication: DEPRESSION
     Dosage: 1 ONCE DAILY TAKEN BY MOUTH
     Route: 048

REACTIONS (3)
  - Dysgeusia [None]
  - Migraine [None]
  - Product substitution issue [None]
